FAERS Safety Report 8790010 (Version 2)
Quarter: 2013Q2

REPORT INFORMATION
  Report Type: Report from Study
  Country: JP (occurrence: JP)
  Receive Date: 20120917
  Receipt Date: 20130514
  Transmission Date: 20140414
  Serious: Yes (Other)
  Sender: FDA-Public Use
  Company Number: JP-VERTEX PHARMACEUTICAL INC.-2012-021037

PATIENT
  Age: 50 Year
  Sex: Male

DRUGS (7)
  1. VX-950 (TELAPREVIR) [Suspect]
     Indication: CHRONIC HEPATITIS C
     Dosage: 1500 MG, QD
     Route: 048
     Dates: start: 20120718
  2. RIBAVIRIN [Suspect]
     Indication: CHRONIC HEPATITIS C
     Dosage: 800 MG, QD
     Route: 048
     Dates: start: 20120718, end: 20120827
  3. RIBAVIRIN [Suspect]
     Dosage: 600 MG, QD
     Route: 048
     Dates: start: 20120828
  4. PEGINTERFERON ALFA-2B [Suspect]
     Indication: CHRONIC HEPATITIS C
     Dosage: 1.25 ?G/KG, QW
     Route: 058
     Dates: start: 20120718, end: 20120813
  5. PEGINTERFERON ALFA-2B [Suspect]
     Dosage: 1 ?G/KG
     Route: 058
     Dates: start: 20120820
  6. URSO [Concomitant]
     Dosage: 300 MG, QD
     Route: 048
  7. GLACTIV [Concomitant]
     Dosage: 50 MG, QD
     Route: 048

REACTIONS (1)
  - Retinopathy [Recovered/Resolved]
